FAERS Safety Report 6829188-X (Version None)
Quarter: 2010Q3

REPORT INFORMATION
  Report Type: 
  Country: None (occurrence: None)
  Receive Date: 20100709
  Receipt Date: 20070302
  Transmission Date: 20110219
  Serious: No
  Sender: FDA-Public Use
  Company Number: US-PFIZER INC-2007018225

PATIENT
  Sex: Female
  Weight: 61.23 kg

DRUGS (8)
  1. CHANTIX [Suspect]
     Indication: SMOKING CESSATION THERAPY
     Dates: start: 20070219
  2. LIPITOR [Concomitant]
  3. DILTIAZEM [Concomitant]
  4. LEVOTHYROXINE SODIUM [Concomitant]
  5. EFFEXOR XR [Concomitant]
  6. METHADONE [Concomitant]
  7. ADVAIR DISKUS 100/50 [Concomitant]
     Indication: EMPHYSEMA
  8. COMBIVENT [Concomitant]

REACTIONS (5)
  - ABDOMINAL PAIN UPPER [None]
  - ABNORMAL DREAMS [None]
  - FLATULENCE [None]
  - FRUSTRATION [None]
  - NAUSEA [None]
